FAERS Safety Report 7128660-5 (Version None)
Quarter: 2010Q4

REPORT INFORMATION
  Report Type: 
  Country: None (occurrence: None)
  Receive Date: 20101130
  Receipt Date: 20101129
  Transmission Date: 20110411
  Serious: Yes (Hospitalization)
  Sender: FDA-Public Use
  Company Number: IT-ROCHE-716373

PATIENT
  Sex: Female

DRUGS (6)
  1. VESANOID [Suspect]
     Dosage: ROUTE: OS, FREQUENCY: DAILY
     Route: 048
     Dates: start: 20100616, end: 20100703
  2. ACICLIN [Concomitant]
     Dosage: ROUTE: OS, FREQUENCY: UNKNOWN
     Route: 048
  3. ZYLORIC [Concomitant]
     Dosage: ROUTE: OS, DOSE AND FREQUENCY: UNKNOWN
     Route: 048
  4. LANSOX [Concomitant]
     Dosage: ROUTE: OS, DOSE AND FREQUENCY: UNKNOWN
     Route: 048
  5. CIPROXIN [Concomitant]
     Dosage: ROUTE: OS, FREQUENCY: UNKNOWN
     Route: 048
  6. DELTACORTENE [Concomitant]
     Dosage: ROUTE: OS, FREQUENCY: UNKNOWN
     Route: 048

REACTIONS (1)
  - ALVEOLITIS [None]
